FAERS Safety Report 5380480-8 (Version None)
Quarter: 2007Q3

REPORT INFORMATION
  Report Type: 
  Country: None (occurrence: None)
  Receive Date: 20070706
  Receipt Date: 20070601
  Transmission Date: 20080115
  Serious: No
  Sender: FDA-Public Use
  Company Number: A0653799A

PATIENT
  Age: 42 Year
  Sex: Female

DRUGS (6)
  1. TYKERB [Suspect]
     Indication: BREAST CANCER
     Dosage: 5TAB PER DAY
     Route: 048
     Dates: start: 20070522
  2. XELODA [Concomitant]
     Route: 048
  3. COUMADIN [Concomitant]
  4. TOPROL-XL [Concomitant]
  5. OXYCODONE HCL [Concomitant]
  6. VITAMIN B6 [Concomitant]

REACTIONS (2)
  - DIARRHOEA [None]
  - DRY SKIN [None]
